FAERS Safety Report 15956629 (Version 2)
Quarter: 2019Q1

REPORT INFORMATION
  Report Type: Report from Study
  Country: US (occurrence: US)
  Receive Date: 20190213
  Receipt Date: 20190305
  Transmission Date: 20190417
  Serious: Yes (Other)
  Sender: FDA-Public Use
  Company Number: US-GILEAD-2019-0385676

PATIENT
  Age: 68 Year
  Sex: Male

DRUGS (5)
  1. IDELALISIB [Suspect]
     Active Substance: IDELALISIB
     Dosage: 150MG BID
     Route: 048
     Dates: start: 20190123, end: 20190205
  2. OXYGEN. [Concomitant]
     Active Substance: OXYGEN
     Dosage: UNK
     Dates: start: 201809, end: 20181108
  3. IDELALISIB [Suspect]
     Active Substance: IDELALISIB
     Indication: NON-HODGKIN^S LYMPHOMA
     Dosage: 150 MG, BID
     Route: 048
     Dates: start: 20180503, end: 20190121
  4. IGG [Suspect]
     Active Substance: HUMAN IMMUNOGLOBULIN G
     Indication: IMMUNE SYSTEM DISORDER
     Dosage: EVERY MONTH
     Route: 042
  5. REVLIMID [Concomitant]
     Active Substance: LENALIDOMIDE
     Dosage: NOT PROVIDED

REACTIONS (9)
  - Asthenia [Recovering/Resolving]
  - Sputum discoloured [Not Recovered/Not Resolved]
  - Neoplasm [Not Recovered/Not Resolved]
  - Cough [Recovering/Resolving]
  - Product use issue [Recovered/Resolved]
  - Respiratory tract infection [Recovering/Resolving]
  - Disease progression [Unknown]
  - Dyspnoea [Not Recovered/Not Resolved]
  - Biopsy [Recovered/Resolved]

NARRATIVE: CASE EVENT DATE: 201811
